FAERS Safety Report 25478623 (Version 1)
Quarter: 2025Q2

REPORT INFORMATION
  Report Type: Spontaneous
  Country: US (occurrence: None)
  Receive Date: 20250625
  Receipt Date: 20250625
  Transmission Date: 20250716
  Serious: Yes (Hospitalization)
  Sender: FDA-CTU
  Company Number: None

PATIENT
  Sex: Female

DRUGS (11)
  1. AMBRISENTAN [Suspect]
     Active Substance: AMBRISENTAN
     Indication: Pulmonary hypertension
     Dosage: FREQUENCY : DAILY;?
     Route: 048
     Dates: start: 20240506
  2. AMOXICILLIN [Concomitant]
     Active Substance: AMOXICILLIN
  3. DOXYLAMINE POW SUCCINAT [Concomitant]
  4. ELIQUIS [Concomitant]
     Active Substance: APIXABAN
  5. FUROSEMIDE [Concomitant]
     Active Substance: FUROSEMIDE
  6. LEVOTHYROXINE [Concomitant]
     Active Substance: LEVOTHYROXINE
  7. MANNITOL [Concomitant]
     Active Substance: MANNITOL
  8. MUCINEX [Concomitant]
     Active Substance: GUAIFENESIN
  9. MULTI-VITAMN [Concomitant]
  10. OMEPRAZOLE [Concomitant]
     Active Substance: OMEPRAZOLE
  11. SILDENAFIL [Concomitant]
     Active Substance: SILDENAFIL

REACTIONS (4)
  - Cardiac ablation [None]
  - Cardiac disorder [None]
  - Therapy interrupted [None]
  - Memory impairment [None]

NARRATIVE: CASE EVENT DATE: 20250616
